FAERS Safety Report 10479600 (Version 1)
Quarter: 2014Q3

REPORT INFORMATION
  Report Type: Spontaneous
  Country: US (occurrence: None)
  Receive Date: 20140926
  Receipt Date: 20140926
  Transmission Date: 20150326
  Serious: Yes (Death, Life-Threatening, Hospitalization, Disabling, Other)
  Sender: FDA-Public Use
  Company Number: None

PATIENT
  Age: 65 Year
  Sex: Female
  Weight: 64.86 kg

DRUGS (21)
  1. NICOTINE-TRANSDERMAL SYSTEM [Concomitant]
  2. PREDNISONE. [Concomitant]
     Active Substance: PREDNISONE
  3. FLEXERIL [Concomitant]
     Active Substance: CYCLOBENZAPRINE HYDROCHLORIDE
  4. HUMIRA [Suspect]
     Active Substance: ADALIMUMAB
     Indication: RHEUMATOID ARTHRITIS
     Dosage: 40MG/0.8 ML ?INJECTION UNDER THE SKIN ?WEEKLY?INJECTION
     Dates: start: 20140708, end: 20140708
  5. NYSTATIN. [Concomitant]
     Active Substance: NYSTATIN
  6. PERCOCET [Concomitant]
     Active Substance: ACETAMINOPHEN\OXYCODONE HYDROCHLORIDE
  7. STOOL SOFTNER [Concomitant]
  8. FOLIC ACID. [Concomitant]
     Active Substance: FOLIC ACID
  9. FENTANYL. [Concomitant]
     Active Substance: FENTANYL
  10. SLEEP AIDE [Concomitant]
  11. ARAVA [Concomitant]
     Active Substance: LEFLUNOMIDE
  12. PEPCID [Concomitant]
     Active Substance: FAMOTIDINE
  13. LEVOTHYROXINE [Concomitant]
     Active Substance: LEVOTHYROXINE
  14. FOLIC ACID. [Concomitant]
     Active Substance: FOLIC ACID
  15. LYRICA [Concomitant]
     Active Substance: PREGABALIN
  16. PLAQUINAL [Concomitant]
  17. COLACE [Concomitant]
     Active Substance: DOCUSATE SODIUM
  18. MELATONIN [Concomitant]
     Active Substance: MELATONIN
  19. POTASSIUM CL [Concomitant]
     Active Substance: POTASSIUM CHLORIDE
  20. METHOTREXATE [Concomitant]
     Active Substance: METHOTREXATE
  21. VITAMIN E [Concomitant]
     Active Substance: .ALPHA.-TOCOPHEROL

REACTIONS (13)
  - Coma [None]
  - Peripheral swelling [None]
  - Septic shock [None]
  - Joint swelling [None]
  - Influenza like illness [None]
  - Physical product label issue [None]
  - Pyrexia [None]
  - Oedema [None]
  - Apparent death [None]
  - Tremor [None]
  - Chills [None]
  - Pneumonia [None]
  - Angioedema [None]

NARRATIVE: CASE EVENT DATE: 20140808
